FAERS Safety Report 9795295 (Version 1)
Quarter: 2014Q1

REPORT INFORMATION
  Report Type: Spontaneous
  Country: FR (occurrence: FR)
  Receive Date: 20140103
  Receipt Date: 20140103
  Transmission Date: 20141002
  Serious: Yes (Death)
  Sender: FDA-Public Use
  Company Number: FR-ROCHE-1328545

PATIENT
  Sex: Female

DRUGS (2)
  1. RIVOTRIL [Suspect]
     Indication: TOXICITY TO VARIOUS AGENTS
     Route: 048
     Dates: start: 20130407, end: 20130407
  2. NOZINAN (FRANCE) [Suspect]
     Indication: TOXICITY TO VARIOUS AGENTS
     Dosage: 5 VIALS
     Route: 048
     Dates: start: 20130407, end: 20130407

REACTIONS (1)
  - Cardio-respiratory arrest [Fatal]
